APPROVED DRUG PRODUCT: MONTELUKAST SODIUM
Active Ingredient: MONTELUKAST SODIUM
Strength: EQ 4MG BASE
Dosage Form/Route: TABLET, CHEWABLE;ORAL
Application: A091128 | Product #001
Applicant: HIKMA PHARMACEUTICALS USA INC
Approved: Aug 3, 2012 | RLD: No | RS: No | Type: DISCN